FAERS Safety Report 9986056 (Version 1)
Quarter: 2014Q1

REPORT INFORMATION
  Report Type: Spontaneous
  Country: US (occurrence: US)
  Receive Date: 20140307
  Receipt Date: 20140307
  Transmission Date: 20141002
  Serious: No
  Sender: FDA-Public Use
  Company Number: US-ABBVIE-13P-163-1089301-00

PATIENT
  Age: 74 Year
  Sex: Female
  Weight: 61.29 kg

DRUGS (8)
  1. BENICAR [Concomitant]
     Indication: CARDIAC DISORDER
  2. TOPROL [Concomitant]
     Indication: BLOOD PRESSURE
  3. TOPROL [Concomitant]
     Indication: CARDIAC DISORDER
  4. ASPIRIN [Concomitant]
     Indication: CARDIAC DISORDER
  5. SIMVASTATIN [Concomitant]
     Indication: BLOOD CHOLESTEROL
  6. HUMIRA [Suspect]
     Indication: PSORIATIC ARTHROPATHY
     Dates: start: 201107, end: 201109
  7. HUMIRA [Suspect]
     Indication: PSORIASIS
  8. BENICAR [Concomitant]
     Indication: BLOOD PRESSURE

REACTIONS (2)
  - Colitis [Not Recovered/Not Resolved]
  - Drug ineffective [Unknown]
